FAERS Safety Report 23862593 (Version 1)
Quarter: 2024Q2

REPORT INFORMATION
  Report Type: Spontaneous
  Country: US (occurrence: None)
  Receive Date: 20240515
  Receipt Date: 20240515
  Transmission Date: 20240716
  Serious: No
  Sender: FDA-Public Use
  Company Number: None

PATIENT
  Age: 7 Year
  Sex: Male
  Weight: 26.1 kg

DRUGS (1)
  1. CYPROHEPTADINE [Suspect]
     Active Substance: CYPROHEPTADINE
     Indication: Gastrointestinal disorder
     Dosage: OTHER QUANTITY : 10 MILLILITERS;?FREQUENCY : AT BEDTIME;?
     Route: 048
     Dates: start: 20240430, end: 20240502

REACTIONS (6)
  - Photosensitivity reaction [None]
  - Therapy interrupted [None]
  - Rash [None]
  - Rash [None]
  - Croup infectious [None]
  - Erythema infectiosum [None]

NARRATIVE: CASE EVENT DATE: 20240515
